FAERS Safety Report 9199967 (Version 1)
Quarter: 2013Q1

REPORT INFORMATION
  Report Type: Spontaneous
  Country: NO (occurrence: NO)
  Receive Date: 20130329
  Receipt Date: 20130329
  Transmission Date: 20140127
  Serious: Yes (Other)
  Sender: FDA-Public Use
  Company Number: NO-SANOFI-AVENTIS-2013SA031883

PATIENT
  Sex: Female

DRUGS (10)
  1. MULTAQ [Suspect]
     Indication: CARDIAC FIBRILLATION
     Route: 065
     Dates: start: 201301
  2. MELOXICAM [Suspect]
     Indication: PAIN IN JAW
     Route: 048
  3. SELOKEN ZOC [Suspect]
     Indication: CARDIAC FIBRILLATION
     Dosage: NOT STATED
     Route: 065
     Dates: start: 201209, end: 201301
  4. SOMAC [Concomitant]
     Indication: ABDOMINAL PAIN UPPER
  5. PREDNISOLON [Concomitant]
     Indication: PRODUCT USED FOR UNKNOWN INDICATION
  6. NITROFURANTOIN [Concomitant]
     Indication: PROPHYLAXIS URINARY TRACT INFECTION
     Dosage: 50MG X2 PER DAY
  7. PARACET [Concomitant]
     Indication: PRODUCT USED FOR UNKNOWN INDICATION
     Dosage: 500MG UP TO X4 PER DAY
  8. OCTREOTIDE [Concomitant]
     Indication: BLOOD GROWTH HORMONE INCREASED
     Dates: end: 201209
  9. LEVAXIN [Concomitant]
     Indication: PRODUCT USED FOR UNKNOWN INDICATION
  10. ZOLEDRONATE [Concomitant]
     Indication: OSTEOPOROSIS
     Route: 065
     Dates: start: 201108

REACTIONS (4)
  - Cardiac fibrillation [Unknown]
  - Myalgia [Unknown]
  - Liver function test abnormal [Unknown]
  - Abdominal pain upper [Recovered/Resolved]
